FAERS Safety Report 14311571 (Version 1)
Quarter: 2017Q4

REPORT INFORMATION
  Report Type: Spontaneous
  Country: DE (occurrence: DE)
  Receive Date: 20171221
  Receipt Date: 20171221
  Transmission Date: 20180321
  Serious: Yes (Hospitalization, Other)
  Sender: FDA-Public Use
  Company Number: DE-CIPLA LTD.-2017DE23724

PATIENT

DRUGS (15)
  1. AVASTIN [Suspect]
     Active Substance: BEVACIZUMAB
     Dosage: 400 MG, UNK
     Route: 042
     Dates: start: 20150831, end: 20150831
  2. COLECALCIFEROL [Concomitant]
     Active Substance: CHOLECALCIFEROL
     Indication: ARTHRITIS
     Dosage: 20000 IU, UNK
     Route: 048
  3. PREDNISOLON [Concomitant]
     Active Substance: PREDNISOLONE
     Indication: ARTHRITIS
     Dosage: 5 MG, UNK
     Route: 048
  4. 5-FLUOROURACIL [Concomitant]
     Active Substance: FLUOROURACIL
     Dosage: 750 MG, UNK
     Route: 040
     Dates: start: 20150831, end: 20150831
  5. FOLINIC ACID [Concomitant]
     Active Substance: LEUCOVORIN
     Indication: COLORECTAL CANCER
     Dosage: 750 MG, UNK
     Route: 042
     Dates: start: 20150706, end: 20150706
  6. FOLINIC ACID [Concomitant]
     Active Substance: LEUCOVORIN
     Dosage: 740 MG, UNK
     Route: 042
     Dates: start: 20150831, end: 20150831
  7. 5-FLUOROURACIL [Concomitant]
     Active Substance: FLUOROURACIL
     Indication: COLORECTAL CANCER
     Dosage: 750 MG, UNK
     Route: 040
     Dates: start: 20150706, end: 20150706
  8. IRINOTECAN [Suspect]
     Active Substance: IRINOTECAN
     Dosage: 340 MG, UNK
     Route: 042
     Dates: start: 20150831, end: 20150831
  9. PANTOPRAZOLE [Concomitant]
     Active Substance: PANTOPRAZOLE
     Indication: ARTHRITIS
     Dosage: 40 MG, UNK
     Route: 048
  10. AVASTIN [Suspect]
     Active Substance: BEVACIZUMAB
     Dosage: 375 MG, UNK
     Route: 042
     Dates: start: 20151005, end: 20151019
  11. 5-FLUOROURACIL [Concomitant]
     Active Substance: FLUOROURACIL
     Dosage: 2250 MG, UNK
     Route: 041
     Dates: start: 20150706, end: 20150708
  12. IRINOTECAN [Suspect]
     Active Substance: IRINOTECAN
     Indication: COLORECTAL CANCER
     Dosage: 340 MG, UNK
     Route: 042
     Dates: start: 20150706, end: 20150706
  13. SULFASALAZINE DELAYED-RELEASE [Concomitant]
     Active Substance: SULFASALAZINE
     Indication: ARTHRITIS
     Dosage: 1000 MG, UNK
     Route: 048
  14. AVASTIN [Suspect]
     Active Substance: BEVACIZUMAB
     Indication: COLORECTAL CANCER
     Dosage: 400 MG, UNK
     Route: 042
     Dates: start: 20150706, end: 20150706
  15. 5-FLUOROURACIL [Concomitant]
     Active Substance: FLUOROURACIL
     Dosage: 2225 MG, UNK
     Route: 041
     Dates: start: 20150831, end: 20150902

REACTIONS (5)
  - Urinary tract infection [Recovered/Resolved]
  - Pulmonary embolism [Recovered/Resolved]
  - Hypertension [Recovering/Resolving]
  - Leukopenia [Recovering/Resolving]
  - Neutropenia [Recovered/Resolved]

NARRATIVE: CASE EVENT DATE: 20150706
